FAERS Safety Report 6543707-2 (Version None)
Quarter: 2010Q1

REPORT INFORMATION
  Report Type: 
  Country: None (occurrence: None)
  Receive Date: 20100119
  Receipt Date: 20100119
  Transmission Date: 20100710
  Serious: No
  Sender: FDA-Public Use
  Company Number: None

PATIENT
  Sex: Female
  Weight: 78.9259 kg

DRUGS (1)
  1. ZICAM NOSE SWABS LABEL NOT INFRONT OF ME [Suspect]
     Indication: NASOPHARYNGITIS
     Dosage: ONE SWAB SEVERAL TIMES/DAY NASAL
     Route: 045
     Dates: start: 20090406, end: 20090413

REACTIONS (2)
  - AGEUSIA [None]
  - ANOSMIA [None]
